FAERS Safety Report 10912534 (Version 1)
Quarter: 2015Q1

REPORT INFORMATION
  Report Type: Spontaneous
  Country: US (occurrence: None)
  Receive Date: 20150310
  Receipt Date: 20150310
  Transmission Date: 20150721
  Serious: No
  Sender: FDA-Public Use
  Company Number: None

PATIENT
  Age: 33 Year
  Sex: Male

DRUGS (13)
  1. CYANOCOBALAMIN. [Concomitant]
     Active Substance: CYANOCOBALAMIN
  2. MELOXICAM. [Concomitant]
     Active Substance: MELOXICAM
  3. BACLOFEN. [Concomitant]
     Active Substance: BACLOFEN
  4. OXYBUTYNIN [Concomitant]
     Active Substance: OXYBUTYNIN
  5. IPRATROPIUM BROMIDE. [Concomitant]
     Active Substance: IPRATROPIUM BROMIDE
  6. AMPYRA [Suspect]
     Active Substance: DALFAMPRIDINE
     Indication: MULTIPLE SCLEROSIS
     Route: 048
     Dates: start: 201110, end: 201405
  7. AVONEX [Concomitant]
     Active Substance: INTERFERON BETA-1A
  8. FLONASE [Concomitant]
     Active Substance: FLUTICASONE PROPIONATE
  9. INH SOLN [Concomitant]
  10. NAPROXEN. [Concomitant]
     Active Substance: NAPROXEN
  11. TROSPIUM [Concomitant]
     Active Substance: TROSPIUM
  12. AMPYRA [Concomitant]
     Active Substance: DALFAMPRIDINE
  13. LORAZEPAM. [Concomitant]
     Active Substance: LORAZEPAM

REACTIONS (3)
  - Bacterial test positive [None]
  - Urinary tract infection [None]
  - Neurogenic bladder [None]

NARRATIVE: CASE EVENT DATE: 20130720
